FAERS Safety Report 11672024 (Version 1)
Quarter: 2015Q4

REPORT INFORMATION
  Report Type: Report from Study
  Country: US (occurrence: US)
  Receive Date: 20151028
  Receipt Date: 20151028
  Transmission Date: 20160304
  Serious: Yes (Other)
  Sender: FDA-Public Use
  Company Number: PHEH2015US009992

PATIENT
  Sex: Female
  Weight: 63.4 kg

DRUGS (1)
  1. MYFORTIC [Suspect]
     Active Substance: MYCOPHENOLATE SODIUM
     Indication: PANCREAS TRANSPLANT
     Dosage: 720 MG, BID
     Route: 048

REACTIONS (3)
  - Off label use [Unknown]
  - Pancreas transplant rejection [Unknown]
  - Diabetes mellitus [Unknown]
